FAERS Safety Report 6436128-4 (Version None)
Quarter: 2009Q4

REPORT INFORMATION
  Report Type: 
  Country: None (occurrence: None)
  Receive Date: 20091105
  Receipt Date: 20091102
  Transmission Date: 20100525
  Serious: Yes (Other)
  Sender: FDA-Public Use
  Company Number: 2009021189

PATIENT
  Age: 73 Year
  Sex: Male

DRUGS (4)
  1. PRIVIGEN [Suspect]
     Indication: IMMUNODEFICIENCY
     Dosage: 10 G, 1 ML/MIN INTRAVENOUS (NOT OTHERWISE SPECIFIED)
     Route: 042
     Dates: start: 20090823, end: 20090823
  2. PREDNSOLONE (PREDNISOLONE) [Concomitant]
  3. ALLOPURINOL [Concomitant]
  4. FENTANYL-100 [Concomitant]

REACTIONS (5)
  - BODY TEMPERATURE INCREASED [None]
  - BRONCHOPNEUMONIA [None]
  - CHILLS [None]
  - CONFUSIONAL STATE [None]
  - INFUSION RELATED REACTION [None]
